FAERS Safety Report 10495418 (Version 1)
Quarter: 2014Q3

REPORT INFORMATION
  Report Type: Spontaneous
  Country: US (occurrence: None)
  Receive Date: 20140930
  Receipt Date: 20140930
  Transmission Date: 20150326
  Serious: Yes (Hospitalization)
  Sender: FDA-Public Use
  Company Number: US-001284N

PATIENT
  Age: 76 Year
  Sex: Female

DRUGS (3)
  1. COUMADINE [Concomitant]
     Active Substance: WARFARIN SODIUM
  2. GATTEX [Suspect]
     Active Substance: TEDUGLUTIDE\WATER
     Indication: SHORT-BOWEL SYNDROME
     Dosage: DF
     Route: 058
     Dates: end: 20140912
  3. SOLUTIONS FOR PARENTERAL NUTRITIONS [Concomitant]

REACTIONS (5)
  - Dialysis [None]
  - Malaise [None]
  - Body temperature decreased [None]
  - Hypotension [None]
  - Viral infection [None]

NARRATIVE: CASE EVENT DATE: 201409
